FAERS Safety Report 16166137 (Version 1)
Quarter: 2019Q2

REPORT INFORMATION
  Report Type: Spontaneous
  Country: SA (occurrence: SA)
  Receive Date: 20190406
  Receipt Date: 20190406
  Transmission Date: 20190711
  Serious: Yes (Life-Threatening, Hospitalization, Other)
  Sender: FDA-Public Use
  Company Number: SA-ACCORD-070965

PATIENT
  Age: 38 Year
  Sex: Female

DRUGS (2)
  1. QUETIAPINE. [Suspect]
     Active Substance: QUETIAPINE
     Indication: SCHIZOPHRENIA
     Dosage: 400 MG
  2. CLOZAPINE. [Suspect]
     Active Substance: CLOZAPINE
     Indication: SCHIZOPHRENIA
     Dosage: 500 MG

REACTIONS (9)
  - Drug hypersensitivity [Unknown]
  - Increased appetite [Unknown]
  - Leukopenia [Unknown]
  - Bone marrow failure [Recovering/Resolving]
  - Salivary hypersecretion [Unknown]
  - Infection [Recovering/Resolving]
  - Agranulocytosis [Unknown]
  - Autonomic nervous system imbalance [Recovering/Resolving]
  - Neutropenia [Recovered/Resolved]
